FAERS Safety Report 5063579-5 (Version None)
Quarter: 2006Q3

REPORT INFORMATION
  Report Type: 
  Country: None (occurrence: None)
  Receive Date: 20060724
  Receipt Date: 20060712
  Transmission Date: 20061208
  Serious: Yes (Hospitalization)
  Sender: FDA-Public Use
  Company Number: 805#1#2006-00084

PATIENT
  Age: 79 Year
  Sex: Female

DRUGS (2)
  1. PROSTANDIN-OINTMENT (ALPROSTADIL) [Suspect]
     Indication: SKIN ULCER
     Dosage: 210 MCG CUTANEOUS
     Route: 003
     Dates: start: 20060628, end: 20060705
  2. FRADIOMYCIN SULFATE (NEOMYCIN SULFATE) [Suspect]
     Route: 003
     Dates: start: 20060628

REACTIONS (3)
  - EOSINOPHIL COUNT INCREASED [None]
  - ERYTHEMA MULTIFORME [None]
  - PYREXIA [None]
